FAERS Safety Report 5401270-3 (Version None)
Quarter: 2007Q3

REPORT INFORMATION
  Report Type: 
  Country: None (occurrence: None)
  Receive Date: 20070731
  Receipt Date: 20070702
  Transmission Date: 20080115
  Serious: Yes (Life-Threatening, Hospitalization)
  Sender: FDA-Public Use
  Company Number: US-JNJFOC-20070706883

PATIENT
  Sex: Male

DRUGS (22)
  1. TYLENOL (CAPLET) [Suspect]
     Route: 065
  2. TYLENOL (CAPLET) [Suspect]
     Indication: DRUG USE FOR UNKNOWN INDICATION
     Route: 065
  3. TRUVADA [Concomitant]
     Indication: HIV INFECTION
     Route: 048
  4. LEXIVA [Concomitant]
     Indication: HIV INFECTION
     Dosage: 2X 700MG
     Route: 065
  5. MK-0518 [Concomitant]
     Indication: HIV INFECTION
     Route: 048
  6. LORAZEPAM [Concomitant]
     Dosage: EVERY 6 HOURS
     Route: 065
  7. MORPHINE [Concomitant]
     Dosage: EVERY 6 HOURS AS NEEDED
     Route: 065
  8. OPIUM TINCTURE [Concomitant]
     Dosage: EVERY 6 HOURS AS NEEDED
     Route: 065
  9. ALINIA [Concomitant]
     Route: 065
  10. LIDOCAINE [Concomitant]
     Route: 065
  11. HYDROCODONE BITARTRATE [Concomitant]
     Dosage: EVERY 4 HOURS, AT NIGHT
     Route: 065
  12. FAMOTIDINE [Concomitant]
     Indication: ANTACID THERAPY
     Route: 065
  13. DIAZEPAM [Concomitant]
     Dosage: AT NIGHT
     Route: 065
  14. OXYCODONE HCL [Concomitant]
     Route: 065
  15. PROMETHAZINE [Concomitant]
     Indication: NAUSEA
     Dosage: 2X 25MG
     Route: 065
  16. FLUTICASONE PROPIONATE [Concomitant]
     Route: 065
  17. NANDROLONE DECANOATE [Concomitant]
     Dosage: 200MG
     Route: 030
  18. COTRIM [Concomitant]
     Indication: ANTIFUNGAL PROPHYLAXIS
     Route: 065
  19. FLUCONAZOLE [Concomitant]
     Indication: ANTIFUNGAL PROPHYLAXIS
     Route: 065
  20. NEXIUM [Concomitant]
     Indication: ANTACID THERAPY
     Route: 065
  21. LISINOPRIL [Concomitant]
     Indication: HYPERTENSION
     Route: 065
  22. OXYANDROLONE [Concomitant]
     Route: 065

REACTIONS (3)
  - ACCIDENTAL OVERDOSE [None]
  - ACUTE HEPATIC FAILURE [None]
  - DRUG PRESCRIBING ERROR [None]
